FAERS Safety Report 24569184 (Version 1)
Quarter: 2024Q4

REPORT INFORMATION
  Report Type: Spontaneous
  Country: US (occurrence: US)
  Receive Date: 20241031
  Receipt Date: 20241031
  Transmission Date: 20250115
  Serious: No
  Sender: CALLIDITAS THERAPEUTICS AB
  Company Number: US-Calliditas-2024CAL01596

PATIENT
  Age: 77 Year
  Sex: Female
  Weight: 49.4 kg

DRUGS (19)
  1. TARPEYO [Suspect]
     Active Substance: BUDESONIDE
     Indication: IgA nephropathy
     Dosage: TAKE 2 CAPSULES (8 MG) BY MOUTH ONCE DAILY 1 HOUR PRIOR TO BREAKFAST
     Route: 048
     Dates: start: 20240704
  2. LISINOPRIL [Concomitant]
     Active Substance: LISINOPRIL
  3. LOSARTAN [Concomitant]
     Active Substance: LOSARTAN
  4. CALCIFEDIOL [Concomitant]
     Active Substance: CALCIFEDIOL
  5. CARVEDILOL [Concomitant]
     Active Substance: CARVEDILOL
  6. CETIRIZINE [Concomitant]
     Active Substance: CETIRIZINE HYDROCHLORIDE
  7. AMLODIPINE [Concomitant]
     Active Substance: AMLODIPINE BESYLATE
  8. ARANESP [Concomitant]
     Active Substance: DARBEPOETIN ALFA
  9. ATORVASTATIN [Concomitant]
     Active Substance: ATORVASTATIN
  10. FOLIC ACID [Concomitant]
     Active Substance: FOLIC ACID
  11. HYDROXYCHLOROQUINE [Concomitant]
     Active Substance: HYDROXYCHLOROQUINE
  12. OMEPRAZOLE [Concomitant]
     Active Substance: OMEPRAZOLE
  13. PROLIA [Concomitant]
     Active Substance: DENOSUMAB
  14. XELJANZ [Concomitant]
     Active Substance: TOFACITINIB CITRATE
  15. FLUTICASONE [Concomitant]
     Active Substance: FLUTICASONE
  16. LOSARTAN [Concomitant]
     Active Substance: LOSARTAN
  17. MIRALAX [Concomitant]
     Active Substance: POLYETHYLENE GLYCOL 3350
  18. OMEGA-3 FATTY ACIDS [Concomitant]
     Active Substance: OMEGA-3 FATTY ACIDS
  19. PLAQUENIL [Concomitant]
     Active Substance: HYDROXYCHLOROQUINE SULFATE

REACTIONS (9)
  - Fluid retention [Not Recovered/Not Resolved]
  - Product dose omission issue [Recovered/Resolved]
  - Pruritus [Not Recovered/Not Resolved]
  - Rash macular [Not Recovered/Not Resolved]
  - Increased tendency to bruise [Not Recovered/Not Resolved]
  - Faeces discoloured [Not Recovered/Not Resolved]
  - Abdominal distension [Unknown]
  - Contusion [Unknown]
  - Prescribed underdose [Unknown]

NARRATIVE: CASE EVENT DATE: 20240704
